FAERS Safety Report 11227664 (Version 2)
Quarter: 2015Q3

REPORT INFORMATION
  Report Type: Spontaneous
  Country: US (occurrence: None)
  Receive Date: 20150626
  Receipt Date: 20150710
  Transmission Date: 20151125
  Serious: Yes (Hospitalization)
  Sender: FDA-Public Use
  Company Number: US-H14001-15-00966

PATIENT
  Age: 50 Year

DRUGS (6)
  1. CISPLATIN (CISPLATIN) (55 MILLIGRAM (S) SQ. METER UNKNOWN) (CISPLATIN) [Suspect]
     Active Substance: CISPLATIN
     Indication: PLASMA CELL MYELOMA
     Dosage: DAYS 1-4 CONTINUOUSLY, (NOT OTHERWISE SPECIFIED)
     Route: 042
     Dates: start: 20120202, end: 20120205
  2. VELCADE [Suspect]
     Active Substance: BORTEZOMIB
     Indication: PLASMA CELL MYELOMA
     Dosage: DAYS 1 AND 4
     Route: 058
     Dates: start: 20120202, end: 20120205
  3. CYTOXAN [Suspect]
     Active Substance: CYCLOPHOSPHAMIDE
     Indication: PLASMA CELL MYELOMA
     Dosage: 800 MG, DAYS 1-4 CONTINUOUSLY, (NOT OTHERWISE SPECIFIED)
     Route: 042
     Dates: start: 20150202, end: 20150205
  4. DECADRON [Concomitant]
     Active Substance: DEXAMETHASONE
  5. ETOPOSIDE (ETOPOSIDE) (20 MILLIGRAM/MILLILITERS, UNKNOWN) (ETOPOSIDE) [Suspect]
     Active Substance: ETOPOSIDE
     Indication: PLASMA CELL MYELOMA
     Dosage: DAYS 1-4 CONTINUOUSLY (NOT OTHERWISE SPECIFIED)
     Route: 042
     Dates: start: 20120202, end: 20120205
  6. ADRIAMYCIN [Suspect]
     Active Substance: DOXORUBICIN HYDROCHLORIDE
     Indication: PLASMA CELL MYELOMA
     Dosage: DAYS 1-4 CONTINUOUSLY (NOT OTHERWISE SPECIFIED)
     Route: 042
     Dates: start: 20120202, end: 20120205

REACTIONS (1)
  - Pneumonia [None]

NARRATIVE: CASE EVENT DATE: 20120328
